FAERS Safety Report 10110136 (Version 1)
Quarter: 2014Q2

REPORT INFORMATION
  Report Type: Spontaneous
  Country: US (occurrence: None)
  Receive Date: 20140421
  Receipt Date: 20140421
  Transmission Date: 20141212
  Serious: No
  Sender: FDA-Public Use
  Company Number: AEGR000088

PATIENT
  Age: 55 Year
  Sex: Male
  Weight: 67.1 kg

DRUGS (7)
  1. JUXTAPID (LOMITAPIDE) CAPSULE, 5MG [Suspect]
     Indication: TYPE IIA HYPERLIPIDAEMIA
     Route: 048
     Dates: start: 20130708, end: 20130912
  2. ASA  (ACETYLSALICYLIC ACID) [Concomitant]
  3. ZETIA (EZETIMIBE) [Concomitant]
  4. NIASPAN (NICOTINIC ACID) [Concomitant]
  5. WELCHOL (COLESEVELAM HYDROCHLORIDE) [Concomitant]
  6. LOVAZA (OMEGA-3-ACID ETHYL ESTER) [Concomitant]
  7. EXFORGE (AMLODIPINE BESILATE, VALSARTAN) [Concomitant]

REACTIONS (3)
  - Weight decreased [None]
  - Nausea [None]
  - Diarrhoea [None]
